FAERS Safety Report 4814012-7 (Version None)
Quarter: 2005Q4

REPORT INFORMATION
  Report Type: 
  Country: None (occurrence: None)
  Receive Date: 20051026
  Receipt Date: 20051013
  Transmission Date: 20060501
  Serious: Yes (Other)
  Sender: FDA-Public Use
  Company Number: 2005-BP-18285RO

PATIENT
  Age: 44 Year
  Sex: Female

DRUGS (1)
  1. MIRTAZAPINE [Suspect]
     Indication: DEPRESSION
     Dosage: 30 MG (30 MG), PO
     Route: 048

REACTIONS (6)
  - ANOREXIA [None]
  - APHTHOUS STOMATITIS [None]
  - BODY TEMPERATURE INCREASED [None]
  - DYSPHAGIA [None]
  - NEUTROPENIA [None]
  - PHARYNGOLARYNGEAL PAIN [None]
